FAERS Safety Report 8765370 (Version 1)
Quarter: 2012Q4

REPORT INFORMATION
  Report Type: 
  Country: GB (occurrence: GB)
  Receive Date: 20120831
  Receipt Date: 20120831
  Transmission Date: 20130627
  Serious: Yes (Hospitalization)
  Sender: FDA-Public Use
  Company Number: GB-JNJFOC-20120814161

PATIENT
  Age: 80 Year
  Sex: Male

DRUGS (8)
  1. TRAMADOL HYDROCHLORIDE [Suspect]
     Indication: PRODUCT USED FOR UNKNOWN INDICATION
     Dosage: 50-100 mg
     Route: 048
     Dates: end: 20120720
  2. PARACETAMOL [Concomitant]
     Route: 065
  3. IPRATROPIUM [Concomitant]
     Route: 065
  4. SALBUTAMOL [Concomitant]
     Route: 065
  5. SERETIDE [Concomitant]
     Route: 065
  6. GABAPENTIN [Concomitant]
     Route: 065
  7. ARTHROTEC [Concomitant]
     Route: 065
  8. BENDROFLUMETHIAZIDE [Concomitant]
     Route: 065

REACTIONS (3)
  - Nocturia [Unknown]
  - Urinary retention [Recovered/Resolved]
  - Dysuria [Unknown]
